FAERS Safety Report 14900073 (Version 1)
Quarter: 2018Q2

REPORT INFORMATION
  Report Type: Spontaneous
  Country: CA (occurrence: CA)
  Receive Date: 20180516
  Receipt Date: 20180516
  Transmission Date: 20180711
  Serious: Yes (Hospitalization)
  Sender: FDA-Public Use
  Company Number: CA-SA-2018SA133658

PATIENT
  Age: 61 Year
  Sex: Male
  Weight: 68 kg

DRUGS (1)
  1. BCG FOR IMMUNOTHERAPY [Suspect]
     Active Substance: BACILLUS CALMETTE-GUERIN ANTIGEN, UNSPECIFIED SUBSTRAIN
     Indication: BLADDER CANCER
     Dosage: FORM: VIAL
     Route: 043

REACTIONS (10)
  - Tenderness [Recovered/Resolved]
  - Infective aneurysm [Recovered/Resolved]
  - Loss of personal independence in daily activities [Recovered/Resolved]
  - Cachexia [Recovered/Resolved]
  - Weight decreased [Recovered/Resolved]
  - Fatigue [Recovered/Resolved]
  - Disseminated Bacillus Calmette-Guerin infection [Recovered/Resolved]
  - Tubulointerstitial nephritis [Recovered/Resolved]
  - Back pain [Recovered/Resolved]
  - Mobility decreased [Recovered/Resolved]
